FAERS Safety Report 24065818 (Version 1)
Quarter: 2024Q3

REPORT INFORMATION
  Report Type: Spontaneous
  Country: ES (occurrence: ES)
  Receive Date: 20240709
  Receipt Date: 20240709
  Transmission Date: 20241016
  Serious: Yes (Hospitalization, Other)
  Sender: PFIZER
  Company Number: ES-IFC-2024002429

PATIENT
  Age: 29 Year
  Sex: Female

DRUGS (5)
  1. AZITHROMYCIN [Suspect]
     Active Substance: AZITHROMYCIN
     Indication: Acne pustular
     Dosage: UNK
     Dates: start: 202404
  2. ISOTRETINOIN [Suspect]
     Active Substance: ISOTRETINOIN
     Indication: Acne
     Dosage: 10 MG, 1X/DAY; THE PATIENT WAS TAKING DERCUTANE 10 MG FOR ONLY 5 DAYS
     Route: 048
     Dates: start: 202405, end: 20240525
  3. LORATADINE [Concomitant]
     Active Substance: LORATADINE
     Dosage: 10 MG, 1X/DAY
  4. AZATHIOPRINE [Concomitant]
     Active Substance: AZATHIOPRINE
     Indication: Crohn^s disease
     Dosage: 50 MG 2 TABLETS /24 H
  5. MESALAMINE [Concomitant]
     Active Substance: MESALAMINE
     Dosage: 2 MG, 1X/DAY

REACTIONS (6)
  - Drug-induced liver injury [Recovered/Resolved]
  - Hepatic cytolysis [Recovered/Resolved]
  - Cholestasis [Recovered/Resolved]
  - Pyrexia [Recovered/Resolved]
  - Chest pain [Unknown]
  - Cough [Unknown]

NARRATIVE: CASE EVENT DATE: 20240401
